FAERS Safety Report 21903736 (Version 1)
Quarter: 2023Q1

REPORT INFORMATION
  Report Type: Spontaneous
  Country: US (occurrence: US)
  Receive Date: 20230124
  Receipt Date: 20230124
  Transmission Date: 20230417
  Serious: No
  Sender: FDA-Public Use
  Company Number: US-BoehringerIngelheim-2023-BI-214382

PATIENT
  Sex: Female

DRUGS (2)
  1. MOBIC [Suspect]
     Active Substance: MELOXICAM
     Indication: Rheumatoid arthritis
     Dates: start: 2003
  2. MOBIC [Suspect]
     Active Substance: MELOXICAM
     Dates: end: 202211

REACTIONS (1)
  - Migraine [Recovered/Resolved]
